FAERS Safety Report 7773239-5 (Version None)
Quarter: 2011Q3

REPORT INFORMATION
  Report Type: 
  Country: None (occurrence: None)
  Receive Date: 20110922
  Receipt Date: 20110914
  Transmission Date: 20111222
  Serious: Yes (Other)
  Sender: FDA-Public Use
  Company Number: US-US-EMD SERONO, INC.-7083342

PATIENT
  Sex: Female

DRUGS (1)
  1. REBIF [Suspect]
     Indication: MULTIPLE SCLEROSIS
     Route: 058
     Dates: start: 20100914, end: 20110819

REACTIONS (5)
  - HEADACHE [None]
  - FATIGUE [None]
  - VASCULAR OCCLUSION [None]
  - MUSCLE SPASTICITY [None]
  - PAIN [None]
